FAERS Safety Report 7656170-5 (Version None)
Quarter: 2011Q3

REPORT INFORMATION
  Report Type: 
  Country: None (occurrence: None)
  Receive Date: 20110804
  Receipt Date: 20110803
  Transmission Date: 20111222
  Serious: No
  Sender: FDA-Public Use
  Company Number: US-PFIZER INC-2011177713

PATIENT
  Sex: Female
  Weight: 53 kg

DRUGS (3)
  1. TAMOXIFEN [Concomitant]
     Indication: BREAST CANCER FEMALE
     Dosage: UNK
     Dates: start: 20110101
  2. PRISTIQ [Suspect]
     Dosage: 50 MG, EVERY OTHER DAY
     Route: 048
  3. PRISTIQ [Suspect]
     Indication: DEPRESSION
     Dosage: 50 MG, DAILY
     Route: 048
     Dates: start: 20110101

REACTIONS (1)
  - DRUG WITHDRAWAL SYNDROME [None]
